FAERS Safety Report 24463515 (Version 1)
Quarter: 2024Q4

REPORT INFORMATION
  Report Type: Report from Study
  Country: US (occurrence: US)
  Receive Date: 20241018
  Receipt Date: 20241018
  Transmission Date: 20250114
  Serious: No
  Sender: ROCHE
  Company Number: US-ROCHE-3221570

PATIENT
  Age: 22 Year
  Sex: Female
  Weight: 81.65 kg

DRUGS (3)
  1. XOLAIR [Suspect]
     Active Substance: OMALIZUMAB
     Indication: Urticaria
     Dosage: ANTICIPATED DATE OF TREATMENT: 01/DEC/2022
     Route: 058
  2. XOLAIR [Suspect]
     Active Substance: OMALIZUMAB
     Indication: Nasal polyps
  3. XOLAIR [Suspect]
     Active Substance: OMALIZUMAB
     Indication: Idiopathic urticaria

REACTIONS (5)
  - Rhinitis [Unknown]
  - Urticaria [Unknown]
  - Pruritus [Unknown]
  - Dry skin [Unknown]
  - Off label use [Unknown]
